FAERS Safety Report 9928654 (Version 2)
Quarter: 2014Q1

REPORT INFORMATION
  Report Type: Spontaneous
  Country: JP (occurrence: JP)
  Receive Date: 20140227
  Receipt Date: 20140227
  Transmission Date: 20141002
  Serious: Yes (Hospitalization)
  Sender: FDA-Public Use
  Company Number: JP-UCBSA-109465

PATIENT
  Age: 74 Year
  Sex: Female

DRUGS (4)
  1. NEUPRO [Suspect]
     Indication: PARKINSON^S DISEASE
     Route: 062
  2. NEUPRO [Suspect]
     Indication: PARKINSON^S DISEASE
     Route: 062
  3. NEUPRO [Suspect]
     Indication: PARKINSON^S DISEASE
     Route: 062
  4. NEUPRO [Suspect]
     Indication: PARKINSON^S DISEASE
     Route: 062

REACTIONS (3)
  - Gastroenteritis norovirus [Unknown]
  - Restlessness [Not Recovered/Not Resolved]
  - Agitation [Not Recovered/Not Resolved]
